FAERS Safety Report 7684308-2 (Version None)
Quarter: 2011Q3

REPORT INFORMATION
  Report Type: 
  Country: None (occurrence: None)
  Receive Date: 20110815
  Receipt Date: 20110801
  Transmission Date: 20111222
  Serious: No
  Sender: FDA-Public Use
  Company Number: US-B.I. PHARMACEUTICALS,INC./RIDGEFIELD-2011-BP-18919BP

PATIENT
  Sex: Male

DRUGS (4)
  1. PRISTIQ [Concomitant]
     Indication: DEPRESSION
     Dosage: 500 MG
     Route: 048
     Dates: start: 20090101
  2. CITALOPRAM HYDROBROMIDE [Concomitant]
     Indication: DEPRESSION
     Dosage: 40 MG
     Route: 048
     Dates: start: 20090101
  3. PRADAXA [Suspect]
     Indication: ATRIAL FIBRILLATION
     Dosage: 300 MG
     Route: 048
     Dates: start: 20110501
  4. MULTAQ [Concomitant]
     Dosage: 800 MG
     Route: 048
     Dates: start: 20110201

REACTIONS (1)
  - ALOPECIA [None]
